FAERS Safety Report 7798088-3 (Version None)
Quarter: 2011Q4

REPORT INFORMATION
  Report Type: 
  Country: None (occurrence: None)
  Receive Date: 20111005
  Receipt Date: 20110929
  Transmission Date: 20120403
  Serious: Yes (Hospitalization)
  Sender: FDA-Public Use
  Company Number: FR-JNJFOC-20111000633

PATIENT
  Age: 53 Year
  Sex: Male

DRUGS (2)
  1. REMICADE [Suspect]
     Indication: CROHN'S DISEASE
     Dosage: SINCE 2007 OR 2009
     Route: 042
     Dates: start: 20070101
  2. LITHIUM [Suspect]
     Indication: BIPOLAR DISORDER
     Dosage: WELL DOSED (UNSPECIFIED), BUT CORRECTLY DOSED
     Route: 065
     Dates: start: 20090101

REACTIONS (2)
  - ELECTROENCEPHALOGRAM ABNORMAL [None]
  - CONFUSIONAL STATE [None]
